FAERS Safety Report 9168354 (Version 2)
Quarter: 2013Q2

REPORT INFORMATION
  Report Type: Spontaneous
  Country: JP (occurrence: JP)
  Receive Date: 20130318
  Receipt Date: 20130403
  Transmission Date: 20140414
  Serious: Yes (Death, Hospitalization)
  Sender: FDA-Public Use
  Company Number: JP-B.I. PHARMACEUTICALS,INC./RIDGEFIELD-2013-BI-06690GD

PATIENT
  Age: 71 Year
  Sex: Male

DRUGS (1)
  1. TIOTROPIUM BROMIDE [Suspect]
     Indication: CHRONIC OBSTRUCTIVE PULMONARY DISEASE

REACTIONS (8)
  - Mycobacterium abscessus infection [Fatal]
  - Respiratory failure [Fatal]
  - Lung infection [Fatal]
  - Mycobacterium avium complex infection [Fatal]
  - Mycobacterium kansasii infection [Fatal]
  - Hypoxia [Fatal]
  - Malnutrition [Unknown]
  - Haemoptysis [Unknown]
